FAERS Safety Report 24763219 (Version 1)
Quarter: 2024Q4

REPORT INFORMATION
  Report Type: Spontaneous
  Country: JP (occurrence: JP)
  Receive Date: 20241222
  Receipt Date: 20241222
  Transmission Date: 20250114
  Serious: Yes (Hospitalization, Other)
  Sender: TAKEDA
  Company Number: JP-TAKEDA-2024TJP018070

PATIENT
  Age: 5 Decade

DRUGS (1)
  1. FRUZAQLA [Suspect]
     Active Substance: FRUQUINTINIB
     Indication: Colon cancer
     Dosage: 5 MILLIGRAM, QD
     Dates: start: 20241205, end: 20241217

REACTIONS (2)
  - Colon cancer [Unknown]
  - Ileus [Not Recovered/Not Resolved]

NARRATIVE: CASE EVENT DATE: 20241217
